FAERS Safety Report 9599935 (Version 1)
Quarter: 2013Q4

REPORT INFORMATION
  Report Type: Spontaneous
  Country: US (occurrence: US)
  Receive Date: 20131004
  Receipt Date: 20131004
  Transmission Date: 20140711
  Serious: No
  Sender: FDA-Public Use
  Company Number: US-AMGEN-USASP2013032200

PATIENT
  Age: 59 Year
  Sex: Female
  Weight: 56.69 kg

DRUGS (8)
  1. ENBREL [Suspect]
     Indication: PRODUCT USED FOR UNKNOWN INDICATION
     Dosage: 50 MG, QWK
     Route: 058
  2. ONE DAILY                          /01824901/ [Concomitant]
     Dosage: UNK
  3. SINUTAB                            /00049001/ [Concomitant]
     Dosage: UNK
  4. SENNA                              /00142201/ [Concomitant]
     Dosage: 8.6 MG, UNK
  5. EXCEDRIN                           /00110301/ [Concomitant]
     Dosage: UNK
  6. VITAMIN B12                        /00056201/ [Concomitant]
     Dosage: 1000 UNK, UNK
  7. CALCIUM [Concomitant]
     Dosage: 500 UNK, UNK
  8. VIT D3 [Concomitant]
     Dosage: UNK

REACTIONS (2)
  - Injection site erythema [Unknown]
  - Injection site pain [Unknown]
